FAERS Safety Report 7493931-X (Version None)
Quarter: 2011Q2

REPORT INFORMATION
  Report Type: 
  Country: None (occurrence: None)
  Receive Date: 20110520
  Receipt Date: 20110512
  Transmission Date: 20111010
  Serious: Yes (Hospitalization)
  Sender: FDA-Public Use
  Company Number: BR-MEDIMMUNE-MEDI-0013196

PATIENT
  Sex: Female
  Weight: 7.8 kg

DRUGS (4)
  1. SYNAGIS [Suspect]
     Route: 030
     Dates: start: 20100801
  2. VITAMIN A [Concomitant]
     Route: 048
     Dates: start: 20100216
  3. FERROUS SULFATE TAB [Concomitant]
     Route: 048
     Dates: start: 20100216
  4. VITAMIN D [Concomitant]
     Route: 048
     Dates: start: 20100216

REACTIONS (6)
  - ASTHMA [None]
  - PNEUMONIA [None]
  - WHEEZING [None]
  - COUGH [None]
  - PYREXIA [None]
  - FATIGUE [None]
